FAERS Safety Report 5133547-3 (Version None)
Quarter: 2006Q4

REPORT INFORMATION
  Report Type: 
  Country: None (occurrence: None)
  Receive Date: 20061018
  Receipt Date: 20061004
  Transmission Date: 20070319
  Serious: Yes (Hospitalization)
  Sender: FDA-Public Use
  Company Number: 2006124059

PATIENT
  Sex: Male
  Weight: 95.2554 kg

DRUGS (2)
  1. BEXTRA [Suspect]
     Indication: ARTHRITIS
  2. CELEBREX [Suspect]
     Indication: ARTHRITIS
     Dosage: 1 IN 1 D

REACTIONS (4)
  - ASTHENIA [None]
  - CARDIAC DISORDER [None]
  - HYPERTENSION [None]
  - PAIN [None]
